FAERS Safety Report 19969514 (Version 1)
Quarter: 2021Q4

REPORT INFORMATION
  Report Type: Report from Study
  Country: HN (occurrence: HN)
  Receive Date: 20211019
  Receipt Date: 20211019
  Transmission Date: 20220303
  Serious: Yes (Other)
  Sender: FDA-Public Use
  Company Number: HN-NOVARTISPH-NVSC2021HN237043

PATIENT
  Age: 59 Year
  Sex: Female

DRUGS (2)
  1. EXFORGE [Suspect]
     Active Substance: AMLODIPINE BESYLATE\VALSARTAN
     Indication: Product used for unknown indication
     Dosage: 5/320MG
     Route: 065
     Dates: start: 2021
  2. METFORMIN HYDROCHLORIDE\VILDAGLIPTIN [Suspect]
     Active Substance: METFORMIN HYDROCHLORIDE\VILDAGLIPTIN
     Indication: Product used for unknown indication
     Dosage: 50/1000MG
     Route: 065

REACTIONS (3)
  - Diabetes mellitus [Unknown]
  - Diabetes mellitus [Unknown]
  - Amnesia [Unknown]

NARRATIVE: CASE EVENT DATE: 20210101
